FAERS Safety Report 9751917 (Version 2)
Quarter: 2014Q1

REPORT INFORMATION
  Report Type: Report from Study
  Country: BE (occurrence: BE)
  Receive Date: 20131213
  Receipt Date: 20140109
  Transmission Date: 20141002
  Serious: Yes (Other)
  Sender: FDA-Public Use
  Company Number: BE-BRISTOL-MYERS SQUIBB COMPANY-19914449

PATIENT
  Age: 50 Year
  Sex: Male
  Weight: 69 kg

DRUGS (3)
  1. ERBITUX [Suspect]
     Indication: CHOLANGIOCARCINOMA
     Dosage: 400MG/M2 IN A 120 MINI.V. INFUSION?MOST RECENT DOSE (250MG/M2) ON 01MAR10
     Route: 042
     Dates: start: 20090507
  2. GEMCITABINE [Suspect]
     Indication: CHOLANGIOCARCINOMA
     Dosage: IN A 30-MIN IV INFUSION ON DAY 1,8+15 EVERY 4 WKS,?MST RECNT 750MG/M2 :01MAR2010.
     Route: 042
     Dates: start: 20090507
  3. PANTOPRAZOLE [Concomitant]
     Indication: DUODENAL ULCER
     Route: 048
     Dates: start: 20091002

REACTIONS (1)
  - Hypersensitivity vasculitis [Recovered/Resolved]
